FAERS Safety Report 7835047-6 (Version None)
Quarter: 2011Q4

REPORT INFORMATION
  Report Type: 
  Country: None (occurrence: None)
  Receive Date: 20111024
  Receipt Date: 20111021
  Transmission Date: 20120403
  Serious: No
  Sender: FDA-Public Use
  Company Number: US-B.I. PHARMACEUTICALS,INC./RIDGEFIELD-2011-BP-24767BP

PATIENT
  Sex: Female

DRUGS (12)
  1. ZANTAC 150 [Suspect]
  2. OMEPRAZOLE [Concomitant]
     Route: 048
  3. ASPIRIN [Concomitant]
     Indication: MYOCARDIAL INFARCTION
     Dosage: 81 MG
     Route: 048
     Dates: start: 20090101
  4. CALCIUM CARBONATE [Concomitant]
     Indication: SUPPLEMENTATION THERAPY
     Route: 048
     Dates: start: 19800101
  5. HYDROCORTISONE [Concomitant]
     Indication: BRAIN TUMOUR OPERATION
     Route: 048
     Dates: start: 19910101
  6. LEVOXYL [Concomitant]
     Route: 048
     Dates: start: 20100101
  7. DEXILANT [Concomitant]
     Dates: start: 20100101
  8. ZANTAC 150 [Suspect]
     Indication: DYSPEPSIA
     Route: 048
     Dates: start: 20111021
  9. IBUPROFEN [Concomitant]
     Indication: PAIN
     Route: 048
     Dates: start: 19910101
  10. MULTI-VITAMIN [Concomitant]
     Indication: SUPPLEMENTATION THERAPY
     Route: 048
     Dates: start: 19800101
  11. GLYBURIDE [Concomitant]
     Indication: DIABETES MELLITUS
     Route: 048
     Dates: start: 20060101
  12. PATANOL [Concomitant]
     Indication: EYE PRURITUS
     Route: 047

REACTIONS (1)
  - DRUG INEFFECTIVE [None]
